FAERS Safety Report 24529532 (Version 1)
Quarter: 2024Q4

REPORT INFORMATION
  Report Type: Spontaneous
  Country: JP (occurrence: JP)
  Receive Date: 20241021
  Receipt Date: 20241021
  Transmission Date: 20250114
  Serious: Yes (Death, Hospitalization)
  Sender: STRIDES
  Company Number: JP-STRIDES ARCOLAB LIMITED-2024SP013502

PATIENT
  Age: 80 Year
  Sex: Female

DRUGS (1)
  1. LETROZOLE [Suspect]
     Active Substance: LETROZOLE
     Indication: Invasive ductal breast carcinoma
     Dosage: 2.5 MILLIGRAM, QD
     Route: 065

REACTIONS (6)
  - Tumour lysis syndrome [Fatal]
  - Acute respiratory distress syndrome [Fatal]
  - Altered state of consciousness [Fatal]
  - Hepatic failure [Fatal]
  - Disease progression [Fatal]
  - Disseminated intravascular coagulation [Fatal]
